FAERS Safety Report 10393306 (Version 1)
Quarter: 2014Q3

REPORT INFORMATION
  Report Type: Spontaneous
  Country: US (occurrence: US)
  Receive Date: 20140819
  Receipt Date: 20140819
  Transmission Date: 20150326
  Serious: Yes (Other)
  Sender: FDA-Public Use
  Company Number: US-PFIZER INC-2014227316

PATIENT
  Age: 58 Year
  Sex: Male
  Weight: 72.56 kg

DRUGS (4)
  1. LYRICA [Suspect]
     Active Substance: PREGABALIN
     Dosage: 100 MG, 2X/DAY (BY TAKING 2 CAPSULES OF 50MG)
     Route: 048
     Dates: end: 201407
  2. LYRICA [Suspect]
     Active Substance: PREGABALIN
     Dosage: 100MG IN THE MORNING, 50MG IN THE AFTERNOON AND 100MG AT NIGHT
     Route: 048
     Dates: start: 201407
  3. LYRICA [Suspect]
     Active Substance: PREGABALIN
     Indication: COMPLEX REGIONAL PAIN SYNDROME
     Dosage: 50 MG, 2X/DAY
     Route: 048
     Dates: start: 201311, end: 201311
  4. LYRICA [Suspect]
     Active Substance: PREGABALIN
     Dosage: 50MG IN THE MORNING AND 100MG AT NIGHT
     Route: 048
     Dates: start: 201311

REACTIONS (15)
  - Abasia [Unknown]
  - Arthropathy [Unknown]
  - Diplopia [Unknown]
  - Weight increased [Unknown]
  - Visual field defect [Unknown]
  - Peripheral swelling [Unknown]
  - Thinking abnormal [Unknown]
  - Mental impairment [Unknown]
  - Arthralgia [Unknown]
  - Ocular hyperaemia [Unknown]
  - Pain in extremity [Unknown]
  - Limb discomfort [Unknown]
  - Dry eye [Unknown]
  - Back pain [Unknown]
  - Vision blurred [Unknown]

NARRATIVE: CASE EVENT DATE: 2014
